FAERS Safety Report 4423781-X (Version None)
Quarter: 2004Q3

REPORT INFORMATION
  Report Type: 
  Country: None (occurrence: None)
  Receive Date: 20040806
  Receipt Date: 20040716
  Transmission Date: 20050211
  Serious: Yes (Hospitalization)
  Sender: FDA-Public Use
  Company Number: EWC040740016

PATIENT
  Age: 56 Year
  Sex: Female
  Weight: 60 kg

DRUGS (4)
  1. CEFACLOR [Suspect]
     Indication: PYREXIA
     Dosage: 750 MG/2 DAY
     Dates: start: 20040625, end: 20040706
  2. CEFACLOR [Suspect]
     Indication: SKIN INFECTION
     Dosage: 750 MG/2 DAY
     Dates: start: 20040625, end: 20040706
  3. METROGYL (METRONIDAZOLE) [Concomitant]
  4. RADIOTHERAPY [Concomitant]

REACTIONS (3)
  - COUGH [None]
  - DRUG INEFFECTIVE [None]
  - PYREXIA [None]
